FAERS Safety Report 18534550 (Version 1)
Quarter: 2020Q4

REPORT INFORMATION
  Report Type: Spontaneous
  Country: US (occurrence: US)
  Receive Date: 20201123
  Receipt Date: 20201123
  Transmission Date: 20210114
  Serious: No
  Sender: FDA-Public Use
  Company Number: None

PATIENT
  Age: 77 Year
  Sex: Female
  Weight: 101.7 kg

DRUGS (7)
  1. LEVOTHYROXINE. [Concomitant]
     Active Substance: LEVOTHYROXINE
  2. OLANZAPINE. [Concomitant]
     Active Substance: OLANZAPINE
  3. BIOTIN [Concomitant]
     Active Substance: BIOTIN
  4. RISPERIDONE. [Concomitant]
     Active Substance: RISPERIDONE
  5. LUTEIN [Concomitant]
     Active Substance: LUTEIN
  6. KETOROLAC [Suspect]
     Active Substance: KETOROLAC TROMETHAMINE
     Dosage: ?          QUANTITY:1 DROP(S);?
     Route: 047
  7. LORATADINE. [Concomitant]
     Active Substance: LORATADINE

REACTIONS (3)
  - Swelling of eyelid [None]
  - Eyelid irritation [None]
  - Erythema [None]

NARRATIVE: CASE EVENT DATE: 20201106
